FAERS Safety Report 22093196 (Version 1)
Quarter: 2023Q1

REPORT INFORMATION
  Report Type: Spontaneous
  Country: US (occurrence: US)
  Receive Date: 20230314
  Receipt Date: 20230314
  Transmission Date: 20230417
  Serious: Yes (Hospitalization)
  Sender: FDA-Public Use
  Company Number: US-MYLANLABS-2023M1025681

PATIENT
  Sex: Female
  Weight: 3 kg

DRUGS (12)
  1. SOTALOL [Suspect]
     Active Substance: SOTALOL
     Indication: Atrial tachycardia
     Dosage: 12 MILLIGRAM/SQ. METER, RECEIVED EVERY 8 HOURS ON POST-OPERATIVE DAY 7
     Route: 065
  2. AMIODARONE [Suspect]
     Active Substance: AMIODARONE
     Indication: Atrial tachycardia
     Dosage: 7 MICROGRAM/KILOGRAM, QMINUTE, STARTED ?.
     Route: 042
  3. AMIODARONE [Suspect]
     Active Substance: AMIODARONE
     Dosage: 3.5 MICROGRAM/KILOGRAM, QMINUTE, STARTED RECEIVING REDUCED??
     Route: 042
  4. AMIODARONE [Suspect]
     Active Substance: AMIODARONE
     Dosage: 1 MILLIGRAM/KILOGRAM, RECEIVED 10 BOLUSES ON POST-OPERATIVE DAY 18
     Route: 042
  5. AMIODARONE [Suspect]
     Active Substance: AMIODARONE
     Dosage: 7 MICROGRAM/KILOGRAM, QMINUTE, STARTED RECEIVING?.
     Route: 042
  6. PROPRANOLOL [Suspect]
     Active Substance: PROPRANOLOL HYDROCHLORIDE
     Indication: Atrial tachycardia
     Dosage: UNK, Q6H, RECEIVED AT 1 MG/KG/DAY DIVIDED EVERY...
     Route: 065
  7. ESMOLOL [Suspect]
     Active Substance: ESMOLOL HYDROCHLORIDE
     Indication: Atrial tachycardia
     Dosage: UNK, INTRAVENOUS INFUSION
     Route: 042
  8. ESMOLOL [Suspect]
     Active Substance: ESMOLOL HYDROCHLORIDE
     Dosage: UNK, INTRAVENOUS INFUSION, RECEIVED AS TRIALS
     Route: 042
  9. ESMOLOL [Suspect]
     Active Substance: ESMOLOL HYDROCHLORIDE
     Dosage: 250 MICROGRAM/KILOGRAM, QMINUTE, INTRAVENOUS INFUSION, 250 MICROGRAM/KILOGRAM, QMINUTE, RECEIVED??
     Route: 042
  10. PROCAINAMIDE HYDROCHLORIDE [Concomitant]
     Active Substance: PROCAINAMIDE HYDROCHLORIDE
     Indication: Atrial tachycardia
     Dosage: 15 MILLIGRAM/KILOGRAM, INTRAVENOUS INFUSION
     Route: 042
  11. PROCAINAMIDE HYDROCHLORIDE [Concomitant]
     Active Substance: PROCAINAMIDE HYDROCHLORIDE
     Dosage: 40 MICROGRAM/KILOGRAM, QMINUTE, INTRAVENOUS INFUSION
     Route: 042
  12. PROCAINAMIDE HYDROCHLORIDE [Concomitant]
     Active Substance: PROCAINAMIDE HYDROCHLORIDE
     Dosage: UNK, INTRAVENOUS INFUSION, RECEIVED AS TRIALS
     Route: 042

REACTIONS (5)
  - Drug ineffective [Unknown]
  - Hypoxia [Unknown]
  - Bradycardia [Unknown]
  - Hypotension [Unknown]
  - Off label use [Unknown]
